FAERS Safety Report 9321520 (Version 1)
Quarter: 2013Q2

REPORT INFORMATION
  Report Type: Report from Study
  Country: DK (occurrence: DK)
  Receive Date: 20130531
  Receipt Date: 20130531
  Transmission Date: 20140414
  Serious: Yes (Death, Hospitalization, Disabling)
  Sender: FDA-Public Use
  Company Number: PHHY2012DK089078

PATIENT
  Age: 74 Year
  Sex: Male
  Weight: 81 kg

DRUGS (6)
  1. SANDOSTATIN LAR [Suspect]
     Indication: NEUROENDOCRINE TUMOUR
     Dosage: UNK UKN, UNK
     Dates: start: 20120820, end: 20120820
  2. INTERFERON ALFA [Concomitant]
     Dosage: UNK UKN, UNK
     Dates: start: 20081126, end: 20100106
  3. ZANOSAR [Concomitant]
     Dosage: UNK UKN, UNK
     Dates: start: 20080820, end: 20081007
  4. 5-FU [Concomitant]
     Dosage: UNK UKN, UNK
     Dates: start: 20080820, end: 20081007
  5. RADIO-THERAPY [Concomitant]
     Dosage: UNK UKN, UNK
  6. CHEMOTHERAPEUTICS [Concomitant]
     Dosage: UNK UKN, UNK

REACTIONS (6)
  - Myelodysplastic syndrome transformation [Fatal]
  - Fatigue [Unknown]
  - Pancytopenia [Unknown]
  - Pyrexia [Unknown]
  - Infection [Unknown]
  - Asthenia [Unknown]
